FAERS Safety Report 15741856 (Version 3)
Quarter: 2019Q2

REPORT INFORMATION
  Report Type: Report from Study
  Country: ES (occurrence: ES)
  Receive Date: 20181219
  Receipt Date: 20190415
  Transmission Date: 20190711
  Serious: Yes (Death, Hospitalization)
  Sender: FDA-Public Use
  Company Number: ES-EISAI MEDICAL RESEARCH-EC-2018-043287

PATIENT
  Age: 41 Year
  Sex: Male
  Weight: 80 kg

DRUGS (8)
  1. DICLOFENAC [Concomitant]
     Active Substance: DICLOFENAC
  2. METAMIZOL [Concomitant]
     Active Substance: METAMIZOLE SODIUM
  3. PREGABALIN. [Concomitant]
     Active Substance: PREGABALIN
  4. LENVATINIB [Suspect]
     Active Substance: LENVATINIB
     Indication: CLEAR CELL RENAL CELL CARCINOMA
     Route: 048
     Dates: start: 20180530, end: 20181211
  5. DIAZEPAM. [Concomitant]
     Active Substance: DIAZEPAM
  6. PEMBROLIZUMAB. [Suspect]
     Active Substance: PEMBROLIZUMAB
     Indication: CLEAR CELL RENAL CELL CARCINOMA
     Route: 041
     Dates: start: 20180530, end: 20181121
  7. METOCLOPRAMIDE. [Concomitant]
     Active Substance: METOCLOPRAMIDE
  8. FENTANYL. [Concomitant]
     Active Substance: FENTANYL

REACTIONS (4)
  - Vomiting [Recovered/Resolved]
  - Malignant neoplasm progression [Fatal]
  - Upper gastrointestinal haemorrhage [Recovered/Resolved]
  - Urinary retention [Recovered/Resolved]

NARRATIVE: CASE EVENT DATE: 20180720
